FAERS Safety Report 14892628 (Version 4)
Quarter: 2018Q3

REPORT INFORMATION
  Report Type: Spontaneous
  Country: US (occurrence: US)
  Receive Date: 20180514
  Receipt Date: 20180719
  Transmission Date: 20181010
  Serious: No
  Sender: FDA-Public Use
  Company Number: US-GLAXOSMITHKLINE-US2018GSK082226

PATIENT
  Sex: Female

DRUGS (4)
  1. SUMATRIPTAN SUCCINATE SOLUTION FOR INJECTION IN PRE?FILLED PEN [Suspect]
     Active Substance: SUMATRIPTAN SUCCINATE
     Dosage: UNK
  2. SUMATRIPTAN SUCCINATE SOLUTION FOR INJECTION IN PRE?FILLED PEN [Suspect]
     Active Substance: SUMATRIPTAN SUCCINATE
     Dosage: UNK
     Route: 042
  3. SUMATRIPTAN SUCCINATE SOLUTION FOR INJECTION IN PRE?FILLED PEN [Suspect]
     Active Substance: SUMATRIPTAN SUCCINATE
     Dosage: UNK
     Route: 042
  4. SUMATRIPTAN SUCCINATE. [Concomitant]
     Active Substance: SUMATRIPTAN SUCCINATE
     Route: 042

REACTIONS (2)
  - Device deployment issue [Unknown]
  - Product quality issue [Unknown]
